FAERS Safety Report 4352536-X (Version None)
Quarter: 2004Q2

REPORT INFORMATION
  Report Type: 
  Country: None (occurrence: None)
  Receive Date: 20040503
  Receipt Date: 20040503
  Transmission Date: 20050107
  Serious: Yes (Hospitalization, Other)
  Sender: FDA-Public Use
  Company Number: None

PATIENT
  Age: 60 Year
  Sex: Male
  Weight: 91.6 kg

DRUGS (9)
  1. BORTEZOMIB [Suspect]
     Indication: MULTIPLE MYELOMA
     Dosage: 2.9 MG
     Dates: start: 20040116
  2. WARFARIN SODIUM [Concomitant]
  3. ALBUTEROL [Concomitant]
  4. ATROVENT MDI [Concomitant]
  5. AREDIA [Concomitant]
  6. ISOSORBIDE MONONITRATE [Concomitant]
  7. LOVASTATIN [Concomitant]
  8. TOPROL-XL [Concomitant]
  9. SOD BICARB [Concomitant]

REACTIONS (7)
  - DECREASED APPETITE [None]
  - DYSPNOEA [None]
  - FATIGUE [None]
  - NAUSEA [None]
  - RENAL FAILURE ACUTE [None]
  - TUMOUR LYSIS SYNDROME [None]
  - VOMITING [None]
